FAERS Safety Report 7835825-3 (Version None)
Quarter: 2011Q4

REPORT INFORMATION
  Report Type: 
  Country: None (occurrence: None)
  Receive Date: 20111024
  Receipt Date: 20111017
  Transmission Date: 20120403
  Serious: Yes (Hospitalization)
  Sender: FDA-Public Use
  Company Number: US-ACTELION-A-US2011-55692

PATIENT

DRUGS (3)
  1. COUMADIN [Concomitant]
  2. LASIX [Concomitant]
  3. TRACLEER [Suspect]
     Indication: PULMONARY ARTERIAL HYPERTENSION
     Dosage: UNK
     Route: 048
     Dates: start: 20050518

REACTIONS (4)
  - OVARIAN CYST RUPTURED [None]
  - HAEMOGLOBIN DECREASED [None]
  - DYSPNOEA [None]
  - PERITONEAL HAEMORRHAGE [None]
